FAERS Safety Report 4523910-3 (Version None)
Quarter: 2004Q4

REPORT INFORMATION
  Report Type: 
  Country: None (occurrence: None)
  Receive Date: 20041116
  Receipt Date: 20040726
  Transmission Date: 20050328
  Serious: No
  Sender: FDA-Public Use
  Company Number: S04-USA-05711-01

PATIENT
  Age: 71 Year
  Sex: Male

DRUGS (9)
  1. NAMENDA [Suspect]
     Indication: AMNESIA
     Dosage: 10 MG QD PO
     Route: 048
     Dates: start: 20040401
  2. NAMENDA [Suspect]
     Indication: AMNESIA
     Dosage: 5 MG QD PO
     Route: 048
     Dates: start: 20040401, end: 20040401
  3. NAMENDA [Suspect]
     Indication: AMNESIA
     Dosage: 5 MG BID PO
     Route: 048
     Dates: start: 20040401, end: 20040401
  4. NAMENDA [Suspect]
     Indication: AMNESIA
     Dosage: 15 MG QD PO
     Route: 048
     Dates: start: 20040401, end: 20040401
  5. LIPITOR [Concomitant]
  6. NEXIUM [Concomitant]
  7. CLARITIN [Concomitant]
  8. XANAX [Concomitant]
  9. SEROQUEL [Concomitant]

REACTIONS (1)
  - DYSPNOEA [None]
